FAERS Safety Report 6107046-6 (Version None)
Quarter: 2009Q1

REPORT INFORMATION
  Report Type: 
  Country: None (occurrence: None)
  Receive Date: 20090305
  Receipt Date: 20090305
  Transmission Date: 20090719
  Serious: Yes (Life-Threatening, Hospitalization)
  Sender: FDA-Public Use
  Company Number: None

PATIENT
  Sex: Female
  Weight: 63.5036 kg

DRUGS (3)
  1. TRIESTROGEN, .75, TRINITY [Suspect]
     Indication: HORMONE REPLACEMENT THERAPY
     Dosage: 1 CAP DAILY ORAL-047
     Route: 048
     Dates: start: 20050801, end: 20081201
  2. PROGESTERONE [Suspect]
     Indication: HORMONE REPLACEMENT THERAPY
     Dosage: 2 CAP DAILY ORAL-047
     Route: 048
     Dates: start: 20050801, end: 20081201
  3. TESTOSTERONE [Suspect]
     Indication: HORMONE REPLACEMENT THERAPY
     Dosage: 1 TAB DAILY ORAL-047
     Route: 048
     Dates: start: 20060601, end: 20081201

REACTIONS (1)
  - UTERINE CANCER [None]
